FAERS Safety Report 8788114 (Version 2)
Quarter: 2015Q3

REPORT INFORMATION
  Report Type: Report from Study
  Country: US (occurrence: US)
  Receive Date: 20120914
  Receipt Date: 20150713
  Transmission Date: 20151125
  Serious: Yes (Death)
  Sender: FDA-Public Use
  Company Number: US-ROCHE-1127565

PATIENT
  Sex: Female
  Weight: 58.57 kg

DRUGS (25)
  1. BENADRYL [Concomitant]
     Active Substance: DIPHENHYDRAMINE HYDROCHLORIDE
     Route: 048
  2. DOCETAXEL. [Concomitant]
     Active Substance: DOCETAXEL
     Route: 065
  3. PEGFILGRASTIM [Concomitant]
     Active Substance: PEGFILGRASTIM
     Route: 065
  4. CLARITIN [Concomitant]
     Active Substance: LORATADINE
     Route: 042
  5. TAGAMET [Concomitant]
     Active Substance: CIMETIDINE
     Route: 042
  6. TAGAMET [Concomitant]
     Active Substance: CIMETIDINE
     Route: 048
  7. DILAUDID [Concomitant]
     Active Substance: HYDROMORPHONE HYDROCHLORIDE
     Indication: PAIN
     Dosage: AS NEEDED
     Route: 065
  8. ZOFRAN [Concomitant]
     Active Substance: ONDANSETRON HYDROCHLORIDE
     Route: 065
  9. DECADRON [Concomitant]
     Active Substance: DEXAMETHASONE
     Route: 042
  10. TAGAMET [Concomitant]
     Active Substance: CIMETIDINE
     Route: 065
  11. ARANESP [Concomitant]
     Active Substance: DARBEPOETIN ALFA
  12. ZOFRAN [Concomitant]
     Active Substance: ONDANSETRON HYDROCHLORIDE
     Route: 065
  13. AVASTIN [Suspect]
     Active Substance: BEVACIZUMAB
     Indication: MALIGNANT NEOPLASM OF UTERINE ADNEXA
     Route: 042
     Dates: start: 20090309
  14. PALONOSETRON [Concomitant]
     Active Substance: PALONOSETRON
     Route: 042
     Dates: start: 20090309, end: 20090309
  15. SOLU-MEDROL [Concomitant]
     Active Substance: METHYLPREDNISOLONE SODIUM SUCCINATE
     Route: 042
  16. LORAZEPAM. [Concomitant]
     Active Substance: LORAZEPAM
     Route: 042
     Dates: start: 20090309, end: 20090309
  17. ATIVAN [Concomitant]
     Active Substance: LORAZEPAM
     Route: 065
  18. AVASTIN [Suspect]
     Active Substance: BEVACIZUMAB
     Indication: OVARIAN CANCER
     Route: 042
  19. TAXOTERE [Concomitant]
     Active Substance: DOCETAXEL
     Route: 065
  20. CIMETIDINE HCL [Concomitant]
     Route: 065
  21. FENTANYL. [Suspect]
     Active Substance: FENTANYL
     Indication: PRODUCT USED FOR UNKNOWN INDICATION
     Dosage: EVERY HOUR EVERY 3 DAYS
     Route: 065
  22. CARBOPLATIN. [Concomitant]
     Active Substance: CARBOPLATIN
     Route: 065
  23. ATIVAN [Concomitant]
     Active Substance: LORAZEPAM
     Route: 042
  24. EFFEXOR XR [Concomitant]
     Active Substance: VENLAFAXINE HYDROCHLORIDE
     Indication: DEPRESSION
     Route: 048
     Dates: start: 20090323
  25. LORATADINE. [Concomitant]
     Active Substance: LORATADINE
     Route: 048

REACTIONS (13)
  - Oral candidiasis [Recovered/Resolved]
  - Death [Fatal]
  - Nausea [Unknown]
  - Constipation [Unknown]
  - Vomiting [Unknown]
  - Diarrhoea [Unknown]
  - Off label use [Unknown]
  - Abdominal pain lower [Unknown]
  - Weight increased [Unknown]
  - Depression [Unknown]
  - Fatigue [Unknown]
  - Sedation [Unknown]
  - Stomatitis [Recovered/Resolved]
